FAERS Safety Report 24908365 (Version 3)
Quarter: 2025Q1

REPORT INFORMATION
  Report Type: Spontaneous
  Country: DE (occurrence: DE)
  Receive Date: 20250131
  Receipt Date: 20250325
  Transmission Date: 20250409
  Serious: Yes (Other)
  Sender: ALEXION PHARMACEUTICALS
  Company Number: DE-002147023-NVSC2025DE011342

PATIENT

DRUGS (8)
  1. FULVESTRANT [Suspect]
     Active Substance: FULVESTRANT
     Indication: Hormone receptor positive HER2 negative breast cancer
  2. FULVESTRANT [Suspect]
     Active Substance: FULVESTRANT
  3. LETROZOLE [Suspect]
     Active Substance: LETROZOLE
     Indication: Hormone receptor positive HER2 negative breast cancer
  4. LETROZOLE [Suspect]
     Active Substance: LETROZOLE
     Dosage: 2.5 MG, QD
  5. RIBOCICLIB [Suspect]
     Active Substance: RIBOCICLIB
     Indication: Hormone receptor positive HER2 negative breast cancer
  6. RIBOCICLIB [Suspect]
     Active Substance: RIBOCICLIB
  7. RIBOCICLIB [Suspect]
     Active Substance: RIBOCICLIB
  8. RIBOCICLIB [Suspect]
     Active Substance: RIBOCICLIB

REACTIONS (1)
  - Erysipelas [Not Recovered/Not Resolved]
